FAERS Safety Report 18559219 (Version 1)
Quarter: 2020Q4

REPORT INFORMATION
  Report Type: Spontaneous
  Country: US (occurrence: US)
  Receive Date: 20201125
  Receipt Date: 20201125
  Transmission Date: 20210114
  Serious: Yes (Hospitalization)
  Sender: FDA-Public Use
  Company Number: None

PATIENT
  Age: 86 Year
  Sex: Female
  Weight: 64 kg

DRUGS (22)
  1. FERRPIS SULFATE [Concomitant]
  2. AMLODIPINE [Concomitant]
     Active Substance: AMLODIPINE BESYLATE
  3. POTASSIUM CHLORIDE. [Concomitant]
     Active Substance: POTASSIUM CHLORIDE
  4. CITALOPRAM [Concomitant]
     Active Substance: CITALOPRAM HYDROBROMIDE
  5. NOVOLOG [Concomitant]
     Active Substance: INSULIN ASPART
  6. PEMBROLIZUMAB 400MG [Suspect]
     Active Substance: PEMBROLIZUMAB
     Indication: DNA MISMATCH REPAIR PROTEIN GENE MUTATION
     Dosage: OTHER FREQUENCY:EVERY 42 DAYS;OTHER ROUTE:IV?
     Route: 042
     Dates: start: 20180731, end: 20200901
  7. ASCORBIC ACID. [Concomitant]
     Active Substance: ASCORBIC ACID
  8. METHENAMINE HIPPURATE. [Concomitant]
     Active Substance: METHENAMINE HIPPURATE
  9. CYCLOBENZAPRINE. [Concomitant]
     Active Substance: CYCLOBENZAPRINE
  10. PED3350 ORAL POWDER [Concomitant]
  11. ASPIRIN. [Concomitant]
     Active Substance: ASPIRIN
  12. REFRESF OPHTHALMIC [Concomitant]
  13. SENNOSIDES-DOCUSATE [Concomitant]
  14. METOCLOPRAMIDE. [Concomitant]
     Active Substance: METOCLOPRAMIDE
  15. CARVEDILOL. [Concomitant]
     Active Substance: CARVEDILOL
  16. MAGNESIUM HYDROXIDE. [Concomitant]
     Active Substance: MAGNESIUM HYDROXIDE
  17. FLUTICASONE. [Concomitant]
     Active Substance: FLUTICASONE
  18. MORPHONE [Concomitant]
  19. GABAPENTIN. [Concomitant]
     Active Substance: GABAPENTIN
  20. PREDNISONE. [Concomitant]
     Active Substance: PREDNISONE
  21. CHLORPHENIRAMINE. [Concomitant]
     Active Substance: CHLORPHENIRAMINE
  22. OMEPRAZOLE. [Concomitant]
     Active Substance: OMEPRAZOLE

REACTIONS (13)
  - Chest pain [None]
  - Compression fracture [None]
  - Bronchial obstruction [None]
  - Pneumonia aspiration [None]
  - Tachypnoea [None]
  - Pleural effusion [None]
  - Rhonchi [None]
  - Pulmonary necrosis [None]
  - Gait inability [None]
  - Atelectasis [None]
  - Acute respiratory failure [None]
  - Dyspnoea [None]
  - Blood pressure decreased [None]

NARRATIVE: CASE EVENT DATE: 20200906
